FAERS Safety Report 14920716 (Version 2)
Quarter: 2018Q4

REPORT INFORMATION
  Report Type: Spontaneous
  Country: US (occurrence: US)
  Receive Date: 20180521
  Receipt Date: 20181025
  Transmission Date: 20190204
  Serious: Yes (Other)
  Sender: FDA-Public Use
  Company Number: US-GLAXOSMITHKLINE-US2018089380

PATIENT
  Age: 51 Year
  Sex: Female

DRUGS (3)
  1. BREO ELLIPTA [Suspect]
     Active Substance: FLUTICASONE FUROATE\VILANTEROL TRIFENATATE
     Indication: ASTHMA
     Dosage: UNK UNK, U
     Dates: start: 201804
  2. BREO ELLIPTA [Suspect]
     Active Substance: FLUTICASONE FUROATE\VILANTEROL TRIFENATATE
     Indication: CHRONIC OBSTRUCTIVE PULMONARY DISEASE
  3. BREO ELLIPTA [Suspect]
     Active Substance: FLUTICASONE FUROATE\VILANTEROL TRIFENATATE
     Indication: RESPIRATORY DISORDER

REACTIONS (8)
  - Heart rate decreased [Recovered/Resolved]
  - Cardiac arrest [Recovered/Resolved]
  - Intentional product use issue [Unknown]
  - Product dose omission [Unknown]
  - Dyspnoea [Unknown]
  - Cardiac operation [Unknown]
  - Tooth extraction [Unknown]
  - Oral infection [Unknown]

NARRATIVE: CASE EVENT DATE: 20180511
